FAERS Safety Report 8796701 (Version 2)
Quarter: 2012Q4

REPORT INFORMATION
  Report Type: Report from Study
  Country: US (occurrence: US)
  Receive Date: 20120919
  Receipt Date: 20121001
  Transmission Date: 20130627
  Serious: Yes (Other)
  Sender: FDA-Public Use
  Company Number: US-ABBOTT-12P-163-0978906-00

PATIENT
  Age: 42 Year
  Sex: Female

DRUGS (10)
  1. HUMIRA [Suspect]
     Indication: RHEUMATOID ARTHRITIS
     Dates: start: 200907
  2. KLONOPIN [Concomitant]
     Indication: ANXIETY
  3. GABAPENTIN [Concomitant]
     Indication: NEUROPATHY PERIPHERAL
  4. LAMICTAL [Concomitant]
     Indication: BIPOLAR DISORDER
  5. SEROQUEL [Concomitant]
     Indication: BIPOLAR DISORDER
     Dosage: At night
  6. OMEPRAZOLE [Concomitant]
     Indication: GASTROOESOPHAGEAL REFLUX DISEASE
  7. VALTREX [Concomitant]
     Indication: HERPES VIRUS INFECTION
  8. WELLBUTRIN [Concomitant]
     Indication: DEPRESSION
  9. LISINOPRIL/HCTZ [Concomitant]
     Indication: HYPERTENSION
     Dosage: 10/12.5mg
  10. QVAR [Concomitant]
     Indication: DYSPNOEA
     Route: 055

REACTIONS (8)
  - Injection site pain [Unknown]
  - Device difficult to use [Unknown]
  - Injection site extravasation [Unknown]
  - Hepatic function abnormal [Unknown]
  - Device malfunction [Unknown]
  - Cyst [Unknown]
  - Cyst [Unknown]
  - Cyst [Unknown]
